FAERS Safety Report 7804792-0 (Version None)
Quarter: 2011Q4

REPORT INFORMATION
  Report Type: 
  Country: None (occurrence: None)
  Receive Date: 20111010
  Receipt Date: 20111003
  Transmission Date: 20120403
  Serious: Yes (Hospitalization)
  Sender: FDA-Public Use
  Company Number: GR-CELGENEUS-066-C5013-11092476

PATIENT
  Sex: Male
  Weight: 68 kg

DRUGS (20)
  1. LENALIDOMIDE [Suspect]
     Dosage: 5 MILLIGRAM
     Route: 048
     Dates: start: 20110905, end: 20110919
  2. VALACYCLOVIR [Concomitant]
     Dosage: 500 MILLIGRAM
     Route: 048
     Dates: start: 20101110
  3. ASPIRIN [Concomitant]
     Indication: ANTIBIOTIC PROPHYLAXIS
     Dosage: 100 MILLIGRAM
     Route: 048
     Dates: start: 20101110
  4. PHENYTOIN [Concomitant]
     Indication: EPILEPSY
     Dosage: 100 MILLIGRAM
     Route: 048
     Dates: start: 20110919, end: 20110928
  5. HALOPERIDOL [Concomitant]
     Indication: EPILEPSY
     Dosage: 6 MILLIGRAM
     Route: 048
     Dates: start: 20110919, end: 20110928
  6. AMIODARONE HCL [Concomitant]
     Indication: ATRIAL FIBRILLATION
     Dosage: 400 MILLIGRAM
     Route: 048
     Dates: start: 20110923, end: 20110926
  7. METOPROLOL TARTRATE [Concomitant]
     Indication: ATRIAL FIBRILLATION
  8. LENALIDOMIDE [Suspect]
     Indication: MULTIPLE MYELOMA
     Dosage: 10 MILLIGRAM
     Route: 048
     Dates: start: 20101110
  9. OMEPRAZOLE [Concomitant]
     Dosage: 20 MILLIGRAM
     Route: 048
     Dates: start: 20101110
  10. AMLODIPINE [Concomitant]
     Dosage: 5 MILLIGRAM
     Route: 048
     Dates: start: 20110923, end: 20110928
  11. ALLOPURINOL [Concomitant]
     Dosage: 100 MILLIGRAM
     Route: 048
     Dates: start: 20090101
  12. METOPROLOL TARTRATE [Concomitant]
     Indication: HYPERTENSION
     Dosage: 100 MILLIGRAM
     Route: 048
     Dates: start: 20110926, end: 20110928
  13. AMLODIPINE [Concomitant]
     Indication: HYPERTENSION
     Dosage: 5 MILLIGRAM
     Route: 048
     Dates: start: 20090101
  14. VALSARTAN [Concomitant]
     Dosage: 160 MILLIGRAM
     Route: 048
     Dates: start: 20110923, end: 20110928
  15. SINTROM [Concomitant]
     Indication: THROMBOSIS PROPHYLAXIS
     Dosage: 3 MILLIGRAM
     Route: 048
     Dates: start: 20110927, end: 20110928
  16. FONDAPARINUX SODIUM [Concomitant]
     Dosage: 2.5 MILLIGRAM
     Route: 050
     Dates: start: 20110927, end: 20110927
  17. DEXAMETHASONE [Suspect]
     Indication: MULTIPLE MYELOMA
     Dosage: 40 MILLIGRAM
     Route: 065
     Dates: start: 20101110
  18. DEXAMETHASONE [Suspect]
     Dosage: 40 MILLIGRAM
     Route: 065
     Dates: start: 20110905, end: 20110919
  19. VALSARTAN [Concomitant]
     Indication: HYPERTENSION
     Dosage: 160 MILLIGRAM
     Route: 048
     Dates: start: 20090101
  20. FONDAPARINUX SODIUM [Concomitant]
     Indication: THROMBOSIS PROPHYLAXIS
     Dosage: 2.5 MILLIGRAM
     Route: 050
     Dates: start: 20110923, end: 20110924

REACTIONS (4)
  - ADENOSQUAMOUS CELL LUNG CANCER [None]
  - LOWER RESPIRATORY TRACT INFECTION [None]
  - HYPOCALCAEMIA [None]
  - TRANSAMINASES INCREASED [None]
